FAERS Safety Report 6182559-X (Version None)
Quarter: 2009Q2

REPORT INFORMATION
  Report Type: 
  Country: None (occurrence: None)
  Receive Date: 20090505
  Receipt Date: 20090428
  Transmission Date: 20091009
  Serious: Yes (Death)
  Sender: FDA-Public Use
  Company Number: 2009JP002532

PATIENT
  Age: 59 Year
  Sex: Male

DRUGS (6)
  1. FK506(TACROLIMUS) FORMULATION UNKNOWN [Suspect]
     Indication: LUNG TRANSPLANT
  2. CELLCEPT [Concomitant]
  3. TAC ANTIBODY INJECTION [Concomitant]
  4. CORTICOSTEROIDS FORMULATION UNKNOWN [Concomitant]
  5. CEPHALOSPORIN C (CEPHALOSPORIN C) [Concomitant]
  6. METHYLPREDNISOLONE (METHYLPREDNISOLONE SODIUM SUCCINATE) INJECTION [Concomitant]

REACTIONS (3)
  - BRONCHOPULMONARY ASPERGILLOSIS [None]
  - MULTI-ORGAN FAILURE [None]
  - PULMONARY HAEMORRHAGE [None]
